FAERS Safety Report 8766567 (Version 1)
Quarter: 2012Q4

REPORT INFORMATION
  Report Type: 
  Country: SE (occurrence: SE)
  Receive Date: 20120904
  Receipt Date: 20120904
  Transmission Date: 20130627
  Serious: Yes (Death)
  Sender: FDA-Public Use
  Company Number: PHHY2012SE076390

PATIENT
  Sex: Female

DRUGS (4)
  1. PREDNISONE [Suspect]
     Indication: PARANEOPLASTIC PEMPHIGUS
     Dosage: 60 mg, UNK
  2. PREDNISONE [Suspect]
     Dosage: 30 mg, UNK
  3. PREDNISONE [Suspect]
     Dosage: 10 mg, UNK
  4. ALEMTUZUMAB [Suspect]
     Dosage: 30 mg, UNK
     Route: 058
     Dates: start: 200902

REACTIONS (3)
  - Multi-organ failure [Fatal]
  - Respiratory failure [Fatal]
  - Drug ineffective [Unknown]
